FAERS Safety Report 9188292 (Version 2)
Quarter: 2014Q1

REPORT INFORMATION
  Report Type: Report from Study
  Country: DE (occurrence: DE)
  Receive Date: 20130325
  Receipt Date: 20140117
  Transmission Date: 20141002
  Serious: Yes (Other)
  Sender: FDA-Public Use
  Company Number: DE-JNJFOC-20130312579

PATIENT
  Age: 33 Year
  Sex: Female
  Weight: 74 kg

DRUGS (1)
  1. USTEKINUMAB [Suspect]
     Indication: PSORIASIS
     Route: 058
     Dates: start: 20100929

REACTIONS (1)
  - Hypothyroidism [Unknown]
